FAERS Safety Report 22344311 (Version 1)
Quarter: 2023Q2

REPORT INFORMATION
  Report Type: Spontaneous
  Country: US (occurrence: US)
  Receive Date: 20230519
  Receipt Date: 20230519
  Transmission Date: 20230721
  Serious: No
  Sender: FDA-Public Use
  Company Number: US-TAKEDA-2023TUS049167

PATIENT
  Sex: Female

DRUGS (2)
  1. VYVANSE [Suspect]
     Active Substance: LISDEXAMFETAMINE DIMESYLATE
     Indication: Attention deficit hyperactivity disorder
     Dosage: 60 MILLIGRAM
     Route: 065
  2. RITALIN [Concomitant]
     Active Substance: METHYLPHENIDATE HYDROCHLORIDE

REACTIONS (10)
  - Influenza like illness [Unknown]
  - Night sweats [Unknown]
  - Affective disorder [Unknown]
  - Withdrawal syndrome [Unknown]
  - Insomnia [Unknown]
  - Nausea [Unknown]
  - Tremor [Unknown]
  - Irritability [Unknown]
  - Product availability issue [Unknown]
  - Product use issue [Unknown]
